FAERS Safety Report 4735757-3 (Version None)
Quarter: 2005Q3

REPORT INFORMATION
  Report Type: 
  Country: None (occurrence: None)
  Receive Date: 20050805
  Receipt Date: 20050727
  Transmission Date: 20060218
  Serious: Yes (Hospitalization)
  Sender: FDA-Public Use
  Company Number: FR-JNJFOC-20050705935

PATIENT
  Sex: Male
  Weight: 55 kg

DRUGS (3)
  1. EPITOMAX [Suspect]
     Indication: PARTIAL SEIZURES
     Route: 048
  2. TEGRETOL [Suspect]
     Indication: PARTIAL SEIZURES
     Route: 048
  3. ROACCUTANE [Interacting]
     Indication: ACNE
     Route: 048

REACTIONS (3)
  - CONDITION AGGRAVATED [None]
  - CONVULSION [None]
  - DRUG INTERACTION [None]
